FAERS Safety Report 16154116 (Version 2)
Quarter: 2019Q2

REPORT INFORMATION
  Report Type: Report from Study
  Country: ZA (occurrence: ZA)
  Receive Date: 20190403
  Receipt Date: 20190627
  Transmission Date: 20190711
  Serious: Yes (Other)
  Sender: FDA-Public Use
  Company Number: ZA-SA-2019SA014200

PATIENT
  Age: 60 Year
  Sex: Female

DRUGS (4)
  1. TOUJEO [Suspect]
     Active Substance: INSULIN GLARGINE
     Dosage: 42 U, HS
     Dates: start: 20190110
  2. INSULIN GLULISINE [Suspect]
     Active Substance: INSULIN GLULISINE
     Dosage: 8 U, TID
     Dates: start: 20181101
  3. CO PRITOR [Concomitant]
     Active Substance: HYDROCHLOROTHIAZIDE\TELMISARTAN
     Dosage: 12.5 MG
  4. TOUJEO [Suspect]
     Active Substance: INSULIN GLARGINE
     Dosage: 34 U, HS
     Dates: start: 20190110

REACTIONS (6)
  - Visual impairment [Unknown]
  - Glycosylated haemoglobin increased [Unknown]
  - Back pain [Not Recovered/Not Resolved]
  - Fibromyalgia [Not Recovered/Not Resolved]
  - Kidney infection [Not Recovered/Not Resolved]
  - Diarrhoea [Not Recovered/Not Resolved]

NARRATIVE: CASE EVENT DATE: 20190315
